FAERS Safety Report 8884584 (Version 2)
Quarter: 2012Q4

REPORT INFORMATION
  Report Type: 
  Country: US (occurrence: US)
  Receive Date: 20121102
  Receipt Date: 20121213
  Transmission Date: 20130627
  Serious: Yes (Hospitalization, Disabling, Other)
  Sender: FDA-Public Use
  Company Number: PHEH2012US021270

PATIENT
  Age: 58 Year
  Sex: Male
  Weight: 53.97 kg

DRUGS (7)
  1. AFINITOR [Suspect]
     Indication: METASTATIC RENAL CELL CARCINOMA
     Dosage: 10 mg/day
     Route: 048
     Dates: start: 20120821, end: 20120911
  2. HYDROCORTISONE [Concomitant]
     Dosage: 10 mg, UNK
     Route: 048
     Dates: start: 20121004
  3. ONDANSETRON HCL [Concomitant]
     Dosage: UNK
     Dates: start: 20120925
  4. SODIUM CHLORIDE [Concomitant]
     Dosage: UNK
     Dates: start: 20120925
  5. ASPIRIN [Concomitant]
     Dosage: 1 DF, daily
  6. SIMVASTATIN [Concomitant]
     Dosage: 10 mg, daily
     Route: 048
  7. INLYTA [Concomitant]

REACTIONS (19)
  - Abdominal pain [Unknown]
  - Stomatitis [Unknown]
  - Oral pain [Unknown]
  - Pancreatitis [Unknown]
  - Amylase increased [Unknown]
  - Rash pruritic [Unknown]
  - Lipase increased [Unknown]
  - Mucosal inflammation [Unknown]
  - Toxicity to various agents [Unknown]
  - Rash generalised [Unknown]
  - Adrenal insufficiency [Unknown]
  - Blood corticotrophin abnormal [Unknown]
  - Skin discolouration [Unknown]
  - Decreased appetite [Unknown]
  - Hypotension [Unknown]
  - Fatigue [Unknown]
  - Ascites [Unknown]
  - Platelet count increased [Unknown]
  - Blood lactate dehydrogenase increased [Unknown]
